FAERS Safety Report 7902277-4 (Version None)
Quarter: 2011Q4

REPORT INFORMATION
  Report Type: 
  Country: None (occurrence: None)
  Receive Date: 20111108
  Receipt Date: 20111107
  Transmission Date: 20120403
  Serious: Yes (Other)
  Sender: FDA-Public Use
  Company Number: US-PFIZER INC-2011272241

PATIENT
  Sex: Female

DRUGS (1)
  1. LYRICA [Suspect]
     Dosage: 75 MG

REACTIONS (10)
  - FEELING COLD [None]
  - SPEECH DISORDER [None]
  - IMPAIRED DRIVING ABILITY [None]
  - VOMITING [None]
  - CONFUSIONAL STATE [None]
  - MENTAL IMPAIRMENT [None]
  - FREQUENT BOWEL MOVEMENTS [None]
  - ACTIVITIES OF DAILY LIVING IMPAIRED [None]
  - DIZZINESS [None]
  - MALAISE [None]
